FAERS Safety Report 5572356-8 (Version None)
Quarter: 2007Q4

REPORT INFORMATION
  Report Type: 
  Country: None (occurrence: None)
  Receive Date: 20071219
  Receipt Date: 20070312
  Transmission Date: 20080405
  Serious: Yes (Life-Threatening, Hospitalization, Other)
  Sender: FDA-Public Use
  Company Number: 64848

PATIENT
  Age: 31 Year
  Sex: Female
  Weight: 62 kg

DRUGS (7)
  1. IBUPROFEN [Suspect]
     Indication: ANALGESIA
     Dosage: 3 DOSES X 1 DAY/ORAL
     Route: 048
     Dates: start: 20060802, end: 20060814
  2. PREDNISOLONE [Suspect]
     Indication: HEPATITIS
     Dosage: 40 MG/1 TIME X 1 DAY/ORAL
     Route: 048
     Dates: start: 20060612, end: 20060618
  3. FOLIC ACID [Concomitant]
  4. LACTULOSE [Concomitant]
  5. SPIRONOLACTONE [Concomitant]
  6. THIAMINE [Concomitant]
  7. BENZODIAZEPINE [Concomitant]

REACTIONS (4)
  - DUODENAL ULCER [None]
  - ENCEPHALOPATHY [None]
  - HAEMATEMESIS [None]
  - MELAENA [None]
